FAERS Safety Report 9915214 (Version 3)
Quarter: 2014Q1

REPORT INFORMATION
  Report Type: Report from Study
  Country: BR (occurrence: BR)
  Receive Date: 20140220
  Receipt Date: 20140326
  Transmission Date: 20141002
  Serious: Yes (Other)
  Sender: FDA-Public Use
  Company Number: BR-US-EMD SERONO, INC.-7269411

PATIENT
  Sex: Female

DRUGS (6)
  1. REBIF [Suspect]
     Indication: RELAPSING-REMITTING MULTIPLE SCLEROSIS
     Dates: start: 20100528, end: 20120404
  2. REBIF [Suspect]
     Dates: start: 20120405
  3. SERTRALINE [Concomitant]
     Indication: PRODUCT USED FOR UNKNOWN INDICATION
  4. RETEMIC [Concomitant]
     Indication: PRODUCT USED FOR UNKNOWN INDICATION
  5. LAMOTRIGINE [Concomitant]
     Indication: EPILEPSY
  6. CLONAZEPAM [Concomitant]
     Indication: PRODUCT USED FOR UNKNOWN INDICATION

REACTIONS (6)
  - Bipolar disorder [Not Recovered/Not Resolved]
  - Injection site hypoaesthesia [Unknown]
  - Injection site pruritus [Not Recovered/Not Resolved]
  - Injection site nodule [Not Recovered/Not Resolved]
  - Injection site reaction [Not Recovered/Not Resolved]
  - Injection site swelling [Unknown]
